FAERS Safety Report 11843849 (Version 2)
Quarter: 2018Q4

REPORT INFORMATION
  Report Type: Spontaneous
  Country: CA (occurrence: CA)
  Receive Date: 20151217
  Receipt Date: 20181123
  Transmission Date: 20190204
  Serious: Yes (Hospitalization)
  Sender: FDA-Public Use
  Company Number: CA-009507513-1512CAN007237

PATIENT
  Age: 37 Year
  Sex: Male
  Weight: 70 kg

DRUGS (8)
  1. REMERON RD [Suspect]
     Active Substance: MIRTAZAPINE
     Indication: DEPRESSION
     Dosage: 7.5 MG, QD
     Route: 048
     Dates: start: 20150218, end: 20150309
  2. TRAZODONE HYDROCHLORIDE. [Concomitant]
     Active Substance: TRAZODONE HYDROCHLORIDE
     Dosage: 100 MILLIGRAM, PO, QD
     Route: 048
  3. MAGNESIUM GLUCEPTATE [Concomitant]
     Active Substance: MAGNESIUM GLUCEPTATE
     Dosage: 3000 MILLIGRAM, BID
  4. FENTANYL. [Concomitant]
     Active Substance: FENTANYL
     Dosage: 37MCG/HR, Q72H
  5. MORPHINE [Concomitant]
     Active Substance: MORPHINE
     Dosage: 5 MILLIGRAM, PO, Q6H, PRN
     Route: 048
  6. WELLBUTRIN XL [Suspect]
     Active Substance: BUPROPION HYDROCHLORIDE
     Indication: DEPRESSION
     Dosage: 300 MG, QD, PO, FOR OVER A YEAR
     Route: 048
  7. SANDOSTATIN [Concomitant]
     Active Substance: OCTREOTIDE ACETATE
     Dosage: 100 MICROGRAM, S/C, TID
     Route: 058
  8. LOPERAMIDE [Concomitant]
     Active Substance: LOPERAMIDE
     Dosage: 2 MILLIGRAM, PO, QID, REGULAR
     Route: 048

REACTIONS (4)
  - Tremor [Unknown]
  - Pain in extremity [Unknown]
  - Muscle spasms [Unknown]
  - Dystonia [Unknown]
